FAERS Safety Report 6244404-3 (Version None)
Quarter: 2009Q2

REPORT INFORMATION
  Report Type: 
  Country: None (occurrence: None)
  Receive Date: 20090623
  Receipt Date: 20090610
  Transmission Date: 20091009
  Serious: Yes (Hospitalization, Other)
  Sender: FDA-Public Use
  Company Number: 2009AL003935

PATIENT
  Age: 65 Year
  Sex: Female

DRUGS (5)
  1. VERAPAMIL HCL [Suspect]
     Indication: ATRIAL FIBRILLATION
     Dosage: 120 MG; PO
     Route: 048
     Dates: start: 20090512, end: 20090513
  2. BISOPROLOL [Concomitant]
  3. ACETYLSALICYLIC ACID [Concomitant]
  4. SIMVASTATIN [Concomitant]
  5. LORATADINE [Concomitant]

REACTIONS (5)
  - CHEST PAIN [None]
  - DIZZINESS [None]
  - DYSPNOEA [None]
  - HYPOTENSION [None]
  - VOMITING [None]
